FAERS Safety Report 6221530-6 (Version None)
Quarter: 2009Q2

REPORT INFORMATION
  Report Type: 
  Country: None (occurrence: None)
  Receive Date: 20090610
  Receipt Date: 20090604
  Transmission Date: 20091009
  Serious: Yes (Death, Life-Threatening, Hospitalization)
  Sender: FDA-Public Use
  Company Number: PHHY2009FR22591

PATIENT
  Sex: Female

DRUGS (5)
  1. LOPRESSOR [Suspect]
     Indication: HYPERTENSION
     Dosage: UNK
     Route: 048
     Dates: start: 20010101
  2. ARAVA [Suspect]
     Indication: RHEUMATOID ARTHRITIS
     Dosage: UNK
     Route: 048
     Dates: start: 20080303
  3. LIPANTHYL ^BRISTOL-MYERS SQUIBB^ [Suspect]
     Indication: HYPERCHOLESTEROLAEMIA
     Dosage: UNK
     Route: 048
     Dates: start: 20030101
  4. ZOLOFT [Suspect]
     Indication: DEPRESSION
     Dosage: 25 MG
     Route: 048
     Dates: start: 20050505
  5. INDOCIN [Suspect]
     Indication: RHEUMATOID ARTHRITIS
     Dosage: 25 MG
     Route: 048
     Dates: start: 20071101

REACTIONS (9)
  - ATRIOVENTRICULAR BLOCK [None]
  - CARDIAC FIBRILLATION [None]
  - COR PULMONALE ACUTE [None]
  - HEPATOMEGALY [None]
  - LEFT VENTRICULAR DYSFUNCTION [None]
  - PULMONARY EMBOLISM [None]
  - RESPIRATORY ARREST [None]
  - SHOCK [None]
  - SINUS TACHYCARDIA [None]
